FAERS Safety Report 6604234-7 (Version None)
Quarter: 2010Q1

REPORT INFORMATION
  Report Type: 
  Country: None (occurrence: None)
  Receive Date: 20100226
  Receipt Date: 20090731
  Transmission Date: 20100710
  Serious: No
  Sender: FDA-Public Use
  Company Number: A0797112A

PATIENT
  Age: 53 Year
  Sex: Female

DRUGS (5)
  1. LAMOTRIGINE [Suspect]
     Indication: BIPOLAR DISORDER
     Dosage: 100MG PER DAY
     Route: 048
     Dates: start: 20090301
  2. VITAMIN B COMPLEX CAP [Concomitant]
  3. VITAMIN D [Concomitant]
  4. AMBIEN [Concomitant]
  5. TRAZODONE HCL [Concomitant]

REACTIONS (2)
  - BACK PAIN [None]
  - NECK PAIN [None]
